FAERS Safety Report 8053463-7 (Version None)
Quarter: 2012Q1

REPORT INFORMATION
  Report Type: 
  Country: None (occurrence: None)
  Receive Date: 20120118
  Receipt Date: 20120113
  Transmission Date: 20120608
  Serious: Yes (Hospitalization)
  Sender: FDA-Public Use
  Company Number: JP-GLAXOSMITHKLINE-B0775703A

PATIENT
  Sex: Female
  Weight: 55 kg

DRUGS (15)
  1. TYKERB [Suspect]
     Indication: BREAST CANCER
     Dosage: 1250MG PER DAY
     Route: 048
     Dates: start: 20110107, end: 20110305
  2. CARVEDILOL [Concomitant]
     Indication: HYPERTENSION
     Route: 048
  3. JUVELA [Concomitant]
     Indication: PALMAR-PLANTAR ERYTHRODYSAESTHESIA SYNDROME
     Route: 061
     Dates: end: 20110908
  4. MOBIC [Concomitant]
     Indication: VARICOSE VEIN
     Route: 048
     Dates: end: 20110518
  5. WHITE SOFT PARAFFIN [Concomitant]
     Indication: PALMAR-PLANTAR ERYTHRODYSAESTHESIA SYNDROME
     Route: 061
     Dates: end: 20110908
  6. XELODA [Suspect]
     Indication: PRODUCT USED FOR UNKNOWN INDICATION
     Dosage: 2400MG PER DAY
     Route: 048
     Dates: start: 20101028, end: 20110309
  7. ALENDRONATE SODIUM [Concomitant]
     Indication: OSTEOPOROSIS
     Route: 048
  8. XELODA [Suspect]
     Dosage: 1800MG PER DAY
     Route: 048
     Dates: start: 20110407, end: 20110818
  9. TYKERB [Suspect]
     Dosage: 1000MG PER DAY
     Route: 048
     Dates: start: 20110408, end: 20110818
  10. CALBLOCK [Concomitant]
     Indication: HYPERTENSION
     Route: 048
  11. OMEPRAZOLE [Concomitant]
     Indication: GASTROOESOPHAGEAL REFLUX DISEASE
     Route: 048
  12. GASLON N [Concomitant]
     Indication: GASTRITIS
     Route: 048
  13. VESICARE [Concomitant]
     Indication: NOCTURIA
     Route: 048
     Dates: end: 20110427
  14. URITOS [Concomitant]
     Indication: NOCTURIA
     Route: 048
     Dates: start: 20110428
  15. LOCOID [Concomitant]
     Indication: PALMAR-PLANTAR ERYTHRODYSAESTHESIA SYNDROME
     Route: 061
     Dates: start: 20110210, end: 20110908

REACTIONS (2)
  - DEHYDRATION [None]
  - PYREXIA [None]
